FAERS Safety Report 10181705 (Version 1)
Quarter: 2014Q2

REPORT INFORMATION
  Report Type: Spontaneous
  Country: GH (occurrence: GH)
  Receive Date: 20140519
  Receipt Date: 20140519
  Transmission Date: 20141212
  Serious: Yes (Other)
  Sender: FDA-Public Use
  Company Number: GH-BAUSCH-BL-2014-002445

PATIENT
  Age: 50 Year
  Sex: Female

DRUGS (5)
  1. GENTAMICIN [Suspect]
     Indication: POSTOPERATIVE CARE
     Dosage: 20MG IN 0.5ML
     Route: 031
  2. NIFEDIPINE [Concomitant]
     Indication: HYPERTENSION
     Route: 048
  3. XYLOCAINE [Concomitant]
     Indication: ANAESTHESIA
     Route: 056
  4. ADRENALINE [Concomitant]
     Indication: ANAESTHESIA
     Dosage: 1 IN 100000
     Route: 056
  5. DEXAMETHASONE [Concomitant]
     Indication: POSTOPERATIVE CARE
     Dosage: 1MG IN 0.5ML

REACTIONS (4)
  - Blindness [Not Recovered/Not Resolved]
  - Pupillary reflex impaired [Unknown]
  - Macular scar [Not Recovered/Not Resolved]
  - Optic atrophy [Not Recovered/Not Resolved]
